FAERS Safety Report 5804079-1 (Version None)
Quarter: 2008Q3

REPORT INFORMATION
  Report Type: 
  Country: None (occurrence: None)
  Receive Date: 20080707
  Receipt Date: 20080707
  Transmission Date: 20090109
  Serious: Yes (Disabling)
  Sender: FDA-Public Use
  Company Number: None

PATIENT
  Age: 78 Year
  Sex: Female

DRUGS (14)
  1. AREDIA [Suspect]
     Indication: MULTIPLE MYELOMA
     Dosage: 90 MG MONTHLY IV
     Route: 042
     Dates: start: 20020101, end: 20020201
  2. ZOMETA [Suspect]
     Dosage: 4 MG MONTHLY IV MARCH - FALL 2002
     Route: 042
     Dates: start: 20020301
  3. POT CHLORIDE [Concomitant]
  4. ARMOUR THYROID [Concomitant]
  5. FAMOTIDINE [Concomitant]
  6. MELOXICAM [Concomitant]
  7. TRIAMTERENE AND HYDROCHLOROTHIAZIDE [Concomitant]
  8. LISINOPRIL [Concomitant]
  9. DOXEPIN HCL [Concomitant]
  10. MIRTAZAPINE [Concomitant]
  11. LECITHIN [Concomitant]
  12. TRAMADOL HCL [Concomitant]
  13. MULTI-VITAMIN [Concomitant]
  14. VITAMIN E + B [Concomitant]

REACTIONS (1)
  - BONE DISORDER [None]
